FAERS Safety Report 13026220 (Version 1)
Quarter: 2016Q4

REPORT INFORMATION
  Report Type: Spontaneous
  Country: US (occurrence: US)
  Receive Date: 20161214
  Receipt Date: 20161214
  Transmission Date: 20170207
  Serious: Yes (Hospitalization)
  Sender: FDA-Public Use
  Company Number: None

PATIENT
  Age: 68 Year
  Sex: Male
  Weight: 75.3 kg

DRUGS (1)
  1. TEMOZOLOMIDE. [Suspect]
     Active Substance: TEMOZOLOMIDE
     Dates: end: 20160510

REACTIONS (15)
  - Central nervous system necrosis [None]
  - Protein total increased [None]
  - Blood albumin decreased [None]
  - White blood cell count increased [None]
  - Memory impairment [None]
  - Asthenia [None]
  - Alanine aminotransferase increased [None]
  - Somnolence [None]
  - Aspartate aminotransferase increased [None]
  - Gait disturbance [None]
  - Aphasia [None]
  - Mental status changes [None]
  - Encephalomalacia [None]
  - Confusional state [None]
  - Balance disorder [None]

NARRATIVE: CASE EVENT DATE: 20160511
